FAERS Safety Report 20307526 (Version 2)
Quarter: 2022Q1

REPORT INFORMATION
  Report Type: Spontaneous
  Country: PL (occurrence: PL)
  Receive Date: 20220107
  Receipt Date: 20220208
  Transmission Date: 20220424
  Serious: Yes (Life-Threatening, Other)
  Sender: FDA-Public Use
  Company Number: PL-Orion Corporation ORION PHARMA-SERT2021-0013

PATIENT
  Age: 17 Year
  Sex: Female

DRUGS (19)
  1. LORAZEPAM [Suspect]
     Active Substance: LORAZEPAM
     Indication: Schizophrenia
     Dosage: UPTO 3 MG/D
     Route: 065
  2. LORAZEPAM [Suspect]
     Active Substance: LORAZEPAM
     Dosage: LORAZEPAM WITHDRAWAL WAS STARTED
     Route: 065
     Dates: start: 2019
  3. LORAZEPAM [Suspect]
     Active Substance: LORAZEPAM
     Dosage: BENZODIAZEPINES WERE ADMINISTERED ON FIVE OCCASIONS
     Route: 065
     Dates: start: 2020
  4. OLANZAPINE [Suspect]
     Active Substance: OLANZAPINE
     Indication: Schizophrenia
     Dosage: UPTO 15MG/D
     Route: 065
  5. OLANZAPINE [Suspect]
     Active Substance: OLANZAPINE
     Dosage: BENZODIAZEPINES WERE ADMINISTERED ON FIVE OCCASIONS
     Route: 065
     Dates: start: 2020
  6. CLOZAPINE [Suspect]
     Active Substance: CLOZAPINE
     Indication: Schizophrenia
     Route: 065
  7. CLOZAPINE [Suspect]
     Active Substance: CLOZAPINE
     Dosage: INCREASED CLOZAPINE UP TO 300 MG/DAY
     Route: 065
  8. CLOZAPINE [Suspect]
     Active Substance: CLOZAPINE
     Dosage: INCREASED CLOZAPINE UP TO 375 MG/DAY
     Route: 065
     Dates: start: 2019
  9. CLOZAPINE [Suspect]
     Active Substance: CLOZAPINE
     Route: 065
     Dates: start: 2020
  10. CLOZAPINE [Suspect]
     Active Substance: CLOZAPINE
     Dosage: DOSE WAS INCREASED
     Route: 065
     Dates: start: 2020
  11. CLOZAPINE [Suspect]
     Active Substance: CLOZAPINE
     Dosage: BENZODIAZEPINES WERE ADMINISTERED ON FIVE OCCASIONS
     Route: 065
     Dates: start: 2020
  12. CLOZAPINE [Suspect]
     Active Substance: CLOZAPINE
     Dosage: WHENEVER NEEDED
     Route: 065
  13. OPIPRAMOL [Suspect]
     Active Substance: OPIPRAMOL
     Indication: Schizophrenia
     Route: 065
  14. SERTRALINE [Suspect]
     Active Substance: SERTRALINE HYDROCHLORIDE
     Indication: Suicidal ideation
     Route: 065
  15. ARIPIPRAZOLE [Suspect]
     Active Substance: ARIPIPRAZOLE
     Indication: Schizophrenia
     Dosage: UPTO 15 MG
     Route: 065
  16. PERAZINE [Suspect]
     Active Substance: PERAZINE
     Indication: Schizophrenia
     Dosage: UPTO 100 MG/D
     Route: 065
  17. PERAZINE [Suspect]
     Active Substance: PERAZINE
     Dosage: UPTO 500 MG/D
     Route: 065
  18. RISPERIDONE [Suspect]
     Active Substance: RISPERIDONE
     Indication: Schizophrenia
     Dosage: UP TO 2 MG/D
     Route: 065
     Dates: start: 2019
  19. ZUCLOPENTHIXOL [Suspect]
     Active Substance: ZUCLOPENTHIXOL
     Indication: Schizophrenia
     Route: 065
     Dates: start: 2020

REACTIONS (2)
  - Epilepsy [Recovered/Resolved]
  - Therapy non-responder [Unknown]

NARRATIVE: CASE EVENT DATE: 20191227
